FAERS Safety Report 5842348-X (Version None)
Quarter: 2008Q3

REPORT INFORMATION
  Report Type: 
  Country: None (occurrence: None)
  Receive Date: 20080812
  Receipt Date: 20080731
  Transmission Date: 20090109
  Serious: Yes (Hospitalization, Other)
  Sender: FDA-Public Use
  Company Number: CA-ELI_LILLY_AND_COMPANY-CA200808000234

PATIENT
  Age: 70 Year
  Sex: Female

DRUGS (12)
  1. FORTEO [Suspect]
     Indication: OSTEOPOROSIS
     Dosage: 20 UG, DAILY (1/D)
     Dates: start: 20070717
  2. LASIX [Concomitant]
  3. PANTOLOC                           /01263201/ [Concomitant]
  4. DIOVAN [Concomitant]
  5. METHOTREXATE [Concomitant]
  6. PREDNISONE TAB [Concomitant]
  7. CRESTOR [Concomitant]
  8. EZETROL [Concomitant]
  9. NOVO-METOPROL [Concomitant]
  10. COUMADIN [Concomitant]
  11. CALCIUM [Concomitant]
  12. VITAMIN D [Concomitant]

REACTIONS (3)
  - FEELING ABNORMAL [None]
  - INTERNATIONAL NORMALISED RATIO INCREASED [None]
  - PNEUMONIA [None]
